FAERS Safety Report 10012141 (Version 1)
Quarter: 2014Q1

REPORT INFORMATION
  Report Type: Report from Study
  Country: US (occurrence: US)
  Receive Date: 20140314
  Receipt Date: 20140314
  Transmission Date: 20141002
  Serious: Yes (Other)
  Sender: FDA-Public Use
  Company Number: US-ABBVIE-14P-163-1210850-00

PATIENT
  Age: 39 Year
  Sex: Female
  Weight: 102.15 kg

DRUGS (3)
  1. HUMIRA [Suspect]
     Indication: CROHN^S DISEASE
     Dates: start: 2013, end: 2013
  2. HUMIRA [Suspect]
     Dates: start: 2013, end: 2013
  3. HUMIRA [Suspect]
     Dates: start: 2013

REACTIONS (8)
  - Ligament sprain [Recovering/Resolving]
  - Ligament rupture [Recovering/Resolving]
  - Road traffic accident [Recovered/Resolved]
  - Tonsillitis [Not Recovered/Not Resolved]
  - Upper respiratory tract infection [Not Recovered/Not Resolved]
  - Asthenia [Not Recovered/Not Resolved]
  - Pain in extremity [Not Recovered/Not Resolved]
  - Swelling face [Not Recovered/Not Resolved]
